FAERS Safety Report 14162780 (Version 1)
Quarter: 2017Q4

REPORT INFORMATION
  Report Type: Report from Study
  Country: None (occurrence: US)
  Receive Date: 20171106
  Receipt Date: 20171106
  Transmission Date: 20180321
  Serious: Yes (Other)
  Sender: FDA-Public Use
  Company Number: US-ABBVIE-17K-163-2150414-00

PATIENT
  Age: 45 Year
  Sex: Female
  Weight: 59.02 kg

DRUGS (26)
  1. REMICADE [Suspect]
     Active Substance: INFLIXIMAB
     Indication: ANKYLOSING SPONDYLITIS
     Route: 065
     Dates: start: 201604, end: 201608
  2. LEVOTHYROXINE. [Concomitant]
     Active Substance: LEVOTHYROXINE
     Indication: THYROIDITIS
  3. OMEGA-3 FATTY ACIDS [Concomitant]
     Active Substance: OMEGA-3 FATTY ACIDS
     Indication: PRODUCT USED FOR UNKNOWN INDICATION
     Dates: end: 2017
  4. TRAMADOL. [Concomitant]
     Active Substance: TRAMADOL
     Indication: PAIN
  5. AMBIEN [Concomitant]
     Active Substance: ZOLPIDEM TARTRATE
     Indication: CHRONIC FATIGUE SYNDROME
  6. AMBIEN [Concomitant]
     Active Substance: ZOLPIDEM TARTRATE
     Indication: INSOMNIA
  7. TIZANIDINE. [Concomitant]
     Active Substance: TIZANIDINE
     Indication: MUSCULOSKELETAL STIFFNESS
  8. BOTOX [Concomitant]
     Active Substance: ONABOTULINUMTOXINA
     Indication: MIGRAINE
     Dates: start: 2015
  9. HUMIRA [Suspect]
     Active Substance: ADALIMUMAB
     Indication: ANKYLOSING SPONDYLITIS
     Route: 058
     Dates: end: 2016
  10. PREDNISONE. [Suspect]
     Active Substance: PREDNISONE
     Indication: PRODUCT USED FOR UNKNOWN INDICATION
     Route: 065
     Dates: end: 2014
  11. MELOXICAM. [Concomitant]
     Active Substance: MELOXICAM
     Indication: ARTHRALGIA
  12. XELJANZ [Suspect]
     Active Substance: TOFACITINIB CITRATE
     Indication: ANKYLOSING SPONDYLITIS
     Route: 065
     Dates: start: 201609, end: 201609
  13. HYDROCODONE [Suspect]
     Active Substance: HYDROCODONE
     Indication: PAIN
  14. TIZANIDINE. [Concomitant]
     Active Substance: TIZANIDINE
     Indication: ANKYLOSING SPONDYLITIS
  15. MAGNESIUM [Concomitant]
     Active Substance: MAGNESIUM
     Indication: MIGRAINE
     Dates: end: 2017
  16. BUDESONIDE. [Concomitant]
     Active Substance: BUDESONIDE
     Indication: PRODUCT USED FOR UNKNOWN INDICATION
  17. HUMIRA [Suspect]
     Active Substance: ADALIMUMAB
     Indication: COLITIS ULCERATIVE
     Route: 058
  18. LEVAQUIN [Suspect]
     Active Substance: LEVOFLOXACIN
     Indication: PRODUCT USED FOR UNKNOWN INDICATION
     Route: 065
     Dates: start: 200912, end: 200912
  19. VENLAFAXINE [Concomitant]
     Active Substance: VENLAFAXINE HYDROCHLORIDE
     Indication: CHRONIC FATIGUE SYNDROME
  20. VITAMIN D3 [Concomitant]
     Active Substance: CHOLECALCIFEROL
     Indication: PRODUCT USED FOR UNKNOWN INDICATION
  21. ASTELIN [Concomitant]
     Active Substance: AZELASTINE HYDROCHLORIDE
     Indication: SINUS DISORDER
  22. MELOXICAM. [Concomitant]
     Active Substance: MELOXICAM
     Indication: PAIN
  23. VITAMIN B2 [Concomitant]
     Active Substance: RIBOFLAVIN
     Indication: MIGRAINE PROPHYLAXIS
  24. HYDROCODONE [Suspect]
     Active Substance: HYDROCODONE
     Indication: ARTHRALGIA
     Route: 065
     Dates: end: 201707
  25. CEFDINIR. [Suspect]
     Active Substance: CEFDINIR
     Indication: PRODUCT USED FOR UNKNOWN INDICATION
     Route: 065
     Dates: start: 201505, end: 201505
  26. MELATONIN [Concomitant]
     Active Substance: MELATONIN
     Indication: INSOMNIA

REACTIONS (24)
  - Hiatus hernia [Not Recovered/Not Resolved]
  - Diarrhoea [Recovered/Resolved]
  - Pain [Not Recovered/Not Resolved]
  - Abdominal distension [Recovering/Resolving]
  - Vertigo [Recovering/Resolving]
  - Blood glucose increased [Recovered/Resolved]
  - Adrenal insufficiency [Recovered/Resolved]
  - Cholangitis sclerosing [Not Recovered/Not Resolved]
  - Dehydration [Recovered/Resolved]
  - Hypometabolism [Not Recovered/Not Resolved]
  - Incontinence [Unknown]
  - Liver tenderness [Not Recovered/Not Resolved]
  - Hepatomegaly [Unknown]
  - Constipation [Unknown]
  - Malaise [Unknown]
  - Hepatic enzyme increased [Recovering/Resolving]
  - Blood cholesterol increased [Recovered/Resolved]
  - Colitis ulcerative [Not Recovered/Not Resolved]
  - Abdominal pain upper [Recovering/Resolving]
  - Blood glucose abnormal [Recovered/Resolved]
  - Anaphylactic reaction [Recovered/Resolved]
  - VIIIth nerve injury [Not Recovered/Not Resolved]
  - Weight decreased [Unknown]
  - Nausea [Unknown]

NARRATIVE: CASE EVENT DATE: 200912
